FAERS Safety Report 14967144 (Version 1)
Quarter: 2018Q2

REPORT INFORMATION
  Report Type: Report from Study
  Country: CN (occurrence: CN)
  Receive Date: 20180604
  Receipt Date: 20180604
  Transmission Date: 20180711
  Serious: Yes (Life-Threatening, Other)
  Sender: FDA-Public Use
  Company Number: CN-CHEPLA-C20170445

PATIENT

DRUGS (4)
  1. ARSENIC TRIOXIDE [Suspect]
     Active Substance: ARSENIC TRIOXIDE
     Indication: ACUTE PROMYELOCYTIC LEUKAEMIA
     Dosage: ATO#0.16 MGXKG-1XD-1, D1- 28#
  2. IDARUBICIN [Suspect]
     Active Substance: IDARUBICIN
     Indication: ACUTE PROMYELOCYTIC LEUKAEMIA
     Dosage: 8 MGXM- 2 XD- 1, D3- 5
  3. TRETINOIN. [Suspect]
     Active Substance: TRETINOIN
     Indication: ACUTE PROMYELOCYTIC LEUKAEMIA
     Dosage: #20 MGXM-2XD-1, D1-28#
  4. DAUNORUBICIN [Suspect]
     Active Substance: DAUNORUBICIN
     Indication: ACUTE PROMYELOCYTIC LEUKAEMIA
     Dosage: DAUNORUBICIN#40 MGXM- 2 XD- 1, D3- 5)

REACTIONS (7)
  - Dry mouth [Unknown]
  - Gastrointestinal disorder [Unknown]
  - Liver injury [Unknown]
  - Leukaemia recurrent [Unknown]
  - Acute promyelocytic leukaemia differentiation syndrome [Unknown]
  - Cardiomyopathy [Unknown]
  - Headache [Unknown]
